FAERS Safety Report 23111896 (Version 1)
Quarter: 2023Q4

REPORT INFORMATION
  Report Type: Spontaneous
  Country: US (occurrence: US)
  Receive Date: 20231026
  Receipt Date: 20231026
  Transmission Date: 20240109
  Serious: No
  Sender: FDA-Public Use
  Company Number: US-GALDERMA-US2023013388

PATIENT

DRUGS (1)
  1. EPSOLAY [Suspect]
     Active Substance: BENZOYL PEROXIDE
     Indication: Rosacea
     Dosage: 1 DOSAGE FORM, 30 GRAMS
     Route: 061
     Dates: start: 20230710, end: 20230713

REACTIONS (2)
  - Erythema [Recovered/Resolved]
  - Pruritus [Recovered/Resolved]

NARRATIVE: CASE EVENT DATE: 20230713
